FAERS Safety Report 20945879 (Version 2)
Quarter: 2022Q2

REPORT INFORMATION
  Report Type: Spontaneous
  Country: US (occurrence: US)
  Receive Date: 20220610
  Receipt Date: 20220613
  Transmission Date: 20220721
  Serious: No
  Sender: FDA-Public Use
  Company Number: US-PFIZER INC-202200809762

PATIENT
  Age: 63 Year
  Sex: Female

DRUGS (1)
  1. LEVOXYL [Suspect]
     Active Substance: LEVOTHYROXINE SODIUM
     Indication: Thyroid disorder
     Dosage: UNK, 1X/DAY (100MCG-125MCG DEPENDING ON HER BLOOD WORK)
     Route: 048

REACTIONS (1)
  - Postprandial hypoglycaemia [Not Recovered/Not Resolved]
